FAERS Safety Report 6918997-4 (Version None)
Quarter: 2010Q3

REPORT INFORMATION
  Report Type: 
  Country: None (occurrence: None)
  Receive Date: 20100811
  Receipt Date: 20100728
  Transmission Date: 20110219
  Serious: No
  Sender: FDA-Public Use
  Company Number: US-ELI_LILLY_AND_COMPANY-US201007007590

PATIENT
  Age: 15 Year
  Sex: Female
  Weight: 64.853 kg

DRUGS (1)
  1. STRATTERA [Suspect]
     Dosage: 80 MG, UNK

REACTIONS (2)
  - FATIGUE [None]
  - PRESYNCOPE [None]
